FAERS Safety Report 7260825-4 (Version None)
Quarter: 2011Q1

REPORT INFORMATION
  Report Type: 
  Country: None (occurrence: None)
  Receive Date: 20110130
  Receipt Date: 20101220
  Transmission Date: 20110831
  Serious: No
  Sender: FDA-Public Use
  Company Number: US-ABBOTT-10P-163-0684966-00

PATIENT
  Sex: Female

DRUGS (12)
  1. HUMIRA [Suspect]
     Indication: CROHN'S DISEASE
     Route: 058
     Dates: start: 20090401, end: 20090501
  2. HUMIRA [Suspect]
     Dates: start: 20090512, end: 20090512
  3. HUMIRA [Suspect]
     Dates: start: 20090428, end: 20090428
  4. TUMS [Concomitant]
     Indication: DYSPEPSIA
     Dosage: 2 PILL
     Route: 048
     Dates: start: 20081202, end: 20090601
  5. SYMBICORT [Concomitant]
     Indication: ASTHMA
     Route: 055
     Dates: start: 20090322, end: 20090905
  6. CLARITIN [Concomitant]
     Indication: HYPERSENSITIVITY
     Dosage: 1 PILL
     Route: 048
     Dates: start: 20090323, end: 20090905
  7. PRENATAL VITAMINS [Concomitant]
     Indication: PRODUCT USED FOR UNKNOWN INDICATION
     Dosage: 1 PILL
     Route: 048
     Dates: start: 20090101, end: 20090905
  8. ALBUTEROL [Concomitant]
     Indication: ASTHMA
     Route: 055
     Dates: start: 20081202, end: 20090905
  9. TYLENOL-500 [Concomitant]
     Indication: PAIN
     Dosage: 2 PILL
     Route: 048
     Dates: start: 20081202, end: 20090905
  10. CAFFEINE [Concomitant]
     Indication: PRODUCT USED FOR UNKNOWN INDICATION
     Dosage: 1 SERVING COKE
     Route: 048
     Dates: start: 20090601, end: 20090905
  11. TUMS [Concomitant]
     Dosage: 4.5 PILL
     Route: 048
     Dates: start: 20090602, end: 20090905
  12. TEA [Concomitant]
     Indication: PRODUCT USED FOR UNKNOWN INDICATION
     Dosage: 1 SERVING 1-2X PER DAY
     Route: 048
     Dates: start: 20081202, end: 20090905

REACTIONS (6)
  - LUNG DISORDER [None]
  - PHARYNGITIS STREPTOCOCCAL [None]
  - CROHN'S DISEASE [None]
  - DRUG INEFFECTIVE [None]
  - NASOPHARYNGITIS [None]
  - PNEUMONIA [None]
